FAERS Safety Report 4948027-5 (Version None)
Quarter: 2006Q1

REPORT INFORMATION
  Report Type: 
  Country: None (occurrence: None)
  Receive Date: 20060320
  Receipt Date: 20051025
  Transmission Date: 20060701
  Serious: Yes (Hospitalization, Disabling)
  Sender: FDA-Public Use
  Company Number: US-MERCK-0510USA09215

PATIENT
  Age: 69 Year
  Sex: Female
  Weight: 58 kg

DRUGS (1)
  1. VIOXX [Suspect]
     Indication: NECK PAIN
     Route: 048
     Dates: start: 19991209, end: 20040601

REACTIONS (15)
  - ABDOMINAL PAIN [None]
  - CARDIOVASCULAR DISORDER [None]
  - CEREBROVASCULAR ACCIDENT [None]
  - DYSPNOEA [None]
  - FEELING ABNORMAL [None]
  - HEADACHE [None]
  - HEMIPLEGIA [None]
  - HIATUS HERNIA [None]
  - HYPOAESTHESIA [None]
  - MIGRAINE [None]
  - PULMONARY EMBOLISM [None]
  - SKIN LESION [None]
  - SPINAL DISORDER [None]
  - URINARY TRACT INFECTION [None]
  - UTERINE DISORDER [None]
